FAERS Safety Report 9217230 (Version 3)
Quarter: 2013Q2

REPORT INFORMATION
  Report Type: Report from Study
  Country: MX (occurrence: MX)
  Receive Date: 20130408
  Receipt Date: 20130516
  Transmission Date: 20140414
  Serious: Yes (Other)
  Sender: FDA-Public Use
  Company Number: PHHY2013MX032011

PATIENT
  Age: 65 Year
  Sex: Female

DRUGS (6)
  1. DIOVAN [Suspect]
     Indication: HYPERTENSION
     Dosage: 1 DF (160 MG), DAILY
     Route: 048
     Dates: start: 201210
  2. TECTA [Concomitant]
     Indication: COLITIS
     Dosage: 1 UKN, DAILY
     Dates: start: 201301
  3. DABEX XR [Concomitant]
     Indication: DIABETES MELLITUS
     Dosage: 1 UKN, DAILY
     Dates: start: 201103
  4. ALEVIAN DUO [Concomitant]
     Indication: COLITIS
     Dosage: 2 UKN, DAILY
     Dates: start: 201301
  5. SUPRA [Concomitant]
     Indication: DIARRHOEA
     Dosage: 1 DF DAILY
     Dates: start: 201303
  6. CARBOTURAL [Concomitant]
     Indication: MUSCLE SPASMS
     Dosage: 2 DF DAILY
     Dates: start: 201303

REACTIONS (8)
  - Hepatitis C [Not Recovered/Not Resolved]
  - Swelling [Not Recovered/Not Resolved]
  - Weight decreased [Not Recovered/Not Resolved]
  - Vomiting [Not Recovered/Not Resolved]
  - Diarrhoea [Not Recovered/Not Resolved]
  - Body temperature increased [Not Recovered/Not Resolved]
  - Nervousness [Not Recovered/Not Resolved]
  - Hypertension [Recovered/Resolved]
